FAERS Safety Report 20968549 (Version 1)
Quarter: 2022Q2

REPORT INFORMATION
  Report Type: Spontaneous
  Country: CN (occurrence: CN)
  Receive Date: 20220616
  Receipt Date: 20220616
  Transmission Date: 20220721
  Serious: Yes (Life-Threatening)
  Sender: FDA-Public Use
  Company Number: None

PATIENT
  Age: 57 Year
  Sex: Female
  Weight: 55 kg

DRUGS (2)
  1. CYCLOPHOSPHAMIDE [Suspect]
     Active Substance: CYCLOPHOSPHAMIDE
     Indication: Breast cancer female
     Dosage: POWDER INJECTION, CYCLOPHOSPHAMIDE (0.85 G) + 0.9% SODIUM CHLORIDE (250 ML), ONCE
     Route: 041
     Dates: start: 20220601, end: 20220601
  2. SODIUM CHLORIDE [Suspect]
     Active Substance: SODIUM CHLORIDE
     Indication: Medication dilution
     Dosage: INJECTION, CYCLOPHOSPHAMIDE (0.85 G) + 0.9% SODIUM CHLORIDE (250 ML), ONCE
     Route: 041
     Dates: start: 20220601, end: 20220601

REACTIONS (1)
  - Hepatic function abnormal [Recovering/Resolving]

NARRATIVE: CASE EVENT DATE: 20220604
